FAERS Safety Report 6235575-3 (Version None)
Quarter: 2009Q2

REPORT INFORMATION
  Report Type: 
  Country: None (occurrence: None)
  Receive Date: 20090616
  Receipt Date: 20090602
  Transmission Date: 20091009
  Serious: Yes (Hospitalization)
  Sender: FDA-Public Use
  Company Number: B0577622A

PATIENT
  Age: 42 Year
  Sex: Male

DRUGS (6)
  1. REQUIP [Suspect]
     Indication: RESTLESS LEGS SYNDROME
     Dosage: ORAL
     Route: 048
     Dates: start: 20071120, end: 20071203
  2. LEVOTHYROXINE SODIUM [Concomitant]
  3. CARBIMAZOLE [Concomitant]
  4. CLONAZEPAM [Concomitant]
  5. TRAMADOL HYDROCHLORIDE AND ACETAMINOPHEN [Concomitant]
  6. TRAMADOL HYDROCHLORIDE [Concomitant]

REACTIONS (4)
  - FALL [None]
  - HYPERSEXUALITY [None]
  - LIBIDO INCREASED [None]
  - PATHOLOGICAL GAMBLING [None]
